FAERS Safety Report 26020501 (Version 1)
Quarter: 2025Q4

REPORT INFORMATION
  Report Type: Spontaneous
  Country: US (occurrence: US)
  Receive Date: 20251110
  Receipt Date: 20251110
  Transmission Date: 20260117
  Serious: No
  Sender: GALPHARM INTERNATIONAL
  Company Number: US-PERRIGO-25US011342

PATIENT
  Age: 84 Year
  Sex: Female
  Weight: 79.819 kg

DRUGS (34)
  1. POLYETHYLENE GLYCOL 3350 [Suspect]
     Active Substance: POLYETHYLENE GLYCOL 3350
     Indication: Impaired gastric emptying
     Dosage: 17 G, QD IN AM
     Route: 048
  2. SIMPONI ARIA [Concomitant]
     Active Substance: GOLIMUMAB
     Indication: Ankylosing spondylitis
     Dosage: LOADING DOSE ONE
     Route: 065
     Dates: start: 2025, end: 2025
  3. SIMPONI ARIA [Concomitant]
     Active Substance: GOLIMUMAB
     Dosage: LOADING DOSE TWO
     Route: 065
     Dates: start: 2025, end: 2025
  4. TURMERIC [Concomitant]
     Active Substance: TURMERIC
     Indication: Autoimmune disorder
     Dosage: UNK
     Route: 065
  5. METFORMIN [Concomitant]
     Active Substance: METFORMIN HYDROCHLORIDE
     Indication: Diabetes mellitus
     Dosage: UNK
     Route: 065
     Dates: start: 1975
  6. HYDROCHLOROTHIAZIDE [Concomitant]
     Active Substance: HYDROCHLOROTHIAZIDE
     Indication: Oedema
     Dosage: 25 MG
     Route: 065
     Dates: start: 1985
  7. BIOTIN [Concomitant]
     Active Substance: BIOTIN
     Indication: Alopecia
     Dosage: UNK
     Route: 065
     Dates: start: 2010
  8. AZITHROMYCIN DIHYDRATE [Concomitant]
     Active Substance: AZITHROMYCIN DIHYDRATE
     Indication: Impaired gastric emptying
     Dosage: BID
     Route: 065
     Dates: start: 2013
  9. BIFIDOBACTERIUM ANIMALIS LACTIS [Concomitant]
     Active Substance: BIFIDOBACTERIUM ANIMALIS LACTIS
     Indication: Impaired gastric emptying
     Dosage: UNK
     Route: 065
     Dates: start: 2013
  10. DIETARY SUPPLEMENT\HERBALS\INDIAN FRANKINCENSE [Concomitant]
     Active Substance: DIETARY SUPPLEMENT\HERBALS\INDIAN FRANKINCENSE
     Indication: Product used for unknown indication
     Dosage: 500 MG, THREE TIMES A WEEK
     Route: 065
     Dates: start: 2020
  11. CURCUMIN [Concomitant]
     Active Substance: CURCUMIN
     Indication: Product used for unknown indication
     Dosage: THREE TIMES A WEEK
     Route: 065
     Dates: start: 2020
  12. CO Q 10 [UBIDECARENONE] [Concomitant]
     Indication: Coronary artery disease
     Dosage: 100 MG
     Route: 065
     Dates: start: 2010
  13. VITAMIN D3 [Concomitant]
     Active Substance: CHOLECALCIFEROL
     Indication: Vitamin D deficiency
     Dosage: 4,000 IU
     Route: 065
  14. COLACE [Concomitant]
     Active Substance: DOCUSATE SODIUM
     Indication: Impaired gastric emptying
     Dosage: UNK
     Route: 065
  15. MAGNESIUM [Concomitant]
     Active Substance: MAGNESIUM
     Indication: Magnesium deficiency
     Dosage: 400 MG
     Route: 065
     Dates: start: 202403
  16. CARDIZEM [Concomitant]
     Active Substance: DILTIAZEM HYDROCHLORIDE
     Indication: Coronary arterial stent insertion
     Dosage: 120 MG XR
     Route: 065
     Dates: start: 2018
  17. CARDIZEM [Concomitant]
     Active Substance: DILTIAZEM HYDROCHLORIDE
     Indication: Coronary artery disease
  18. LISINOPRIL [Concomitant]
     Active Substance: LISINOPRIL
     Indication: Hypertension
     Dosage: 10 MG
     Route: 065
     Dates: start: 2020
  19. LIVALO [Concomitant]
     Active Substance: PITAVASTATIN CALCIUM
     Indication: Blood cholesterol increased
     Dosage: 2 MG
     Route: 065
  20. POTASSIUM CHLORIDE [Concomitant]
     Active Substance: POTASSIUM CHLORIDE
     Indication: Blood potassium decreased
     Dosage: 10 MEQ
     Route: 065
     Dates: start: 2023
  21. THERATEARS [Concomitant]
     Active Substance: CARBOXYMETHYLCELLULOSE SODIUM
     Indication: Dry eye
     Dosage: UNK
     Route: 065
     Dates: start: 2015
  22. THERATEARS [Concomitant]
     Active Substance: CARBOXYMETHYLCELLULOSE SODIUM
     Indication: Cataract
  23. FERRITIN [Concomitant]
     Active Substance: FERRITIN
     Indication: Blood iron decreased
     Dosage: 975 MG
     Route: 065
     Dates: start: 202411
  24. MOMETASONE FUROATE [Concomitant]
     Active Substance: MOMETASONE FUROATE
     Indication: Hypersensitivity
     Dosage: 50 MEQ
     Route: 065
     Dates: start: 202411
  25. TYLENOL [Concomitant]
     Active Substance: ACETAMINOPHEN
     Indication: Pain
     Dosage: 1000 MG PRN
     Route: 065
  26. TYLENOL [Concomitant]
     Active Substance: ACETAMINOPHEN
     Indication: Pyrexia
  27. TIZANIDINE [Concomitant]
     Active Substance: TIZANIDINE
     Indication: Muscle spasms
     Dosage: PRN
     Route: 065
     Dates: start: 2015
  28. ZOFRAN [Concomitant]
     Active Substance: ONDANSETRON HYDROCHLORIDE
     Indication: Nausea
     Dosage: 4 MG SL
     Route: 065
     Dates: start: 2010
  29. VOLTAREN [Concomitant]
     Active Substance: DICLOFENAC SODIUM
     Indication: Arthralgia
     Dosage: UNK
     Route: 065
     Dates: start: 2022
  30. ALBUTEROL SULFATE [Concomitant]
     Active Substance: ALBUTEROL SULFATE
     Indication: Dyspnoea
     Dosage: 90 MG
     Route: 065
     Dates: start: 2021
  31. EPIPEN [Concomitant]
     Active Substance: EPINEPHRINE
     Indication: Hypersensitivity
     Dosage: PRN
     Route: 065
  32. SUCRALFATE [Concomitant]
     Active Substance: SUCRALFATE
     Indication: Gastrooesophageal reflux disease
     Dosage: 1 GM
     Route: 065
     Dates: start: 1985
  33. NITROGLYCERIN [Concomitant]
     Active Substance: NITROGLYCERIN
     Indication: Chest pain
     Dosage: SL PRN
     Route: 065
     Dates: start: 2024
  34. CHOLECALCIFEROL\GENISTEIN\ZINC GLYCINATE [Concomitant]
     Active Substance: CHOLECALCIFEROL\GENISTEIN\ZINC GLYCINATE
     Indication: Osteoporosis
     Dosage: 500 MG
     Route: 065
     Dates: start: 2021

REACTIONS (3)
  - Blood glucose increased [Not Recovered/Not Resolved]
  - Product use in unapproved indication [Unknown]
  - Incorrect product administration duration [Unknown]

NARRATIVE: CASE EVENT DATE: 20250815
